FAERS Safety Report 5869657-2 (Version None)
Quarter: 2008Q3

REPORT INFORMATION
  Report Type: 
  Country: None (occurrence: None)
  Receive Date: 20080902
  Receipt Date: 20080818
  Transmission Date: 20090109
  Serious: Yes (Hospitalization)
  Sender: FDA-Public Use
  Company Number: 2008BI002821

PATIENT
  Age: 44 Year
  Sex: Female
  Weight: 49.8957 kg

DRUGS (4)
  1. TYSABRI [Suspect]
     Indication: MULTIPLE SCLEROSIS
     Dosage: 300 MG;QM;IV
     Route: 042
     Dates: start: 20070912
  2. BACLOFEN [Concomitant]
  3. NEURONTIN [Concomitant]
  4. PROVIGIL [Concomitant]

REACTIONS (3)
  - DRUG HYPERSENSITIVITY [None]
  - OVARIAN CANCER [None]
  - UTERINE LEIOMYOMA [None]
